FAERS Safety Report 12853169 (Version 4)
Quarter: 2017Q1

REPORT INFORMATION
  Report Type: Report from Study
  Country: US (occurrence: US)
  Receive Date: 20161017
  Receipt Date: 20170119
  Transmission Date: 20170428
  Serious: Yes (Hospitalization)
  Sender: FDA-Public Use
  Company Number: US-JNJFOC-20161008032

PATIENT
  Age: 48 Year
  Sex: Male

DRUGS (34)
  1. BUDESONIDE. [Concomitant]
     Active Substance: BUDESONIDE
     Route: 048
  2. OXYCODONE [Concomitant]
     Active Substance: OXYCODONE
     Indication: PAIN
  3. TYLENOL [Concomitant]
     Active Substance: ACETAMINOPHEN
     Route: 048
  4. CYMBALTA [Concomitant]
     Active Substance: DULOXETINE HYDROCHLORIDE
  5. PREDNISONE. [Suspect]
     Active Substance: PREDNISONE
     Indication: DIARRHOEA
     Dates: start: 20160107
  6. PREDNISONE. [Suspect]
     Active Substance: PREDNISONE
     Indication: GRAFT VERSUS HOST DISEASE IN SKIN
     Dates: start: 20160107
  7. XARELTO [Concomitant]
     Active Substance: RIVAROXABAN
     Route: 048
  8. ZOFRAN [Concomitant]
     Active Substance: ONDANSETRON HYDROCHLORIDE
     Indication: VOMITING
     Route: 048
  9. PHENERGAN [Concomitant]
     Active Substance: PROMETHAZINE HYDROCHLORIDE
     Indication: NAUSEA
  10. IMBRUVICA [Suspect]
     Active Substance: IBRUTINIB
     Indication: GRAFT VERSUS HOST DISEASE IN SKIN
     Route: 048
     Dates: start: 20160907, end: 2016
  11. FLAGYL [Concomitant]
     Active Substance: METRONIDAZOLE\METRONIDAZOLE HYDROCHLORIDE
     Route: 048
  12. REGLAN [Concomitant]
     Active Substance: METOCLOPRAMIDE HYDROCHLORIDE
     Route: 048
  13. VANCOMYCIN [Concomitant]
     Active Substance: VANCOMYCIN
     Route: 042
  14. ZOLOFT [Concomitant]
     Active Substance: SERTRALINE HYDROCHLORIDE
     Route: 048
  15. LINUM USITATISSIMUM SEED [Concomitant]
  16. LASIX [Concomitant]
     Active Substance: FUROSEMIDE
     Indication: OEDEMA
  17. TRAZODONE [Concomitant]
     Active Substance: TRAZODONE HYDROCHLORIDE
     Indication: SLEEP DISORDER
     Route: 048
  18. XANAX [Concomitant]
     Active Substance: ALPRAZOLAM
     Route: 048
  19. ZOFRAN [Concomitant]
     Active Substance: ONDANSETRON HYDROCHLORIDE
     Indication: NAUSEA
     Route: 048
  20. CHOLESTYRAMINE. [Concomitant]
     Active Substance: CHOLESTYRAMINE
     Dosage: 4G/9G
     Route: 048
  21. LYRICA [Concomitant]
     Active Substance: PREGABALIN
     Route: 048
  22. BACTRIM [Concomitant]
     Active Substance: SULFAMETHOXAZOLE\TRIMETHOPRIM
     Route: 048
  23. CLONAZEPAM. [Concomitant]
     Active Substance: CLONAZEPAM
     Indication: ANXIETY
  24. PREDNISONE. [Suspect]
     Active Substance: PREDNISONE
     Indication: VOMITING
     Dates: start: 20160107
  25. BENADRYL [Concomitant]
     Active Substance: DIPHENHYDRAMINE HYDROCHLORIDE
     Route: 048
  26. ZINGIBER OFFICINALE RHIZOME [Concomitant]
     Route: 048
  27. PRILOSEC [Concomitant]
     Active Substance: OMEPRAZOLE MAGNESIUM
  28. PREDNISONE. [Suspect]
     Active Substance: PREDNISONE
     Indication: NAUSEA
     Dates: start: 20160107
  29. ACYCLOVIR. [Concomitant]
     Active Substance: ACYCLOVIR
     Route: 048
  30. DIGOXIN. [Concomitant]
     Active Substance: DIGOXIN
     Indication: ATRIAL FIBRILLATION
     Route: 048
  31. PROBIOTICS NOS [Concomitant]
     Active Substance: PROBIOTICS NOS
  32. PHENERGAN [Concomitant]
     Active Substance: PROMETHAZINE HYDROCHLORIDE
     Indication: VOMITING
  33. LOMOTIL [Concomitant]
     Active Substance: ATROPINE SULFATE\DIPHENOXYLATE HYDROCHLORIDE
     Indication: DIARRHOEA
  34. OXYCODONE [Concomitant]
     Active Substance: OXYCODONE
     Indication: ABDOMINAL PAIN

REACTIONS (15)
  - Respiratory failure [Recovered/Resolved]
  - Irritability [Recovering/Resolving]
  - Headache [Not Recovered/Not Resolved]
  - Dyspnoea [Recovered/Resolved]
  - Painful respiration [Recovered/Resolved]
  - Vomiting [Recovered/Resolved]
  - Abdominal pain [Not Recovered/Not Resolved]
  - Nausea [Recovered/Resolved]
  - Clostridium difficile colitis [Recovering/Resolving]
  - Chest discomfort [Recovered/Resolved]
  - Anxiety [Not Recovered/Not Resolved]
  - Pulmonary embolism [Recovered/Resolved]
  - Productive cough [Recovered/Resolved]
  - Product use issue [Recovered/Resolved]
  - Off label use [Recovered/Resolved]

NARRATIVE: CASE EVENT DATE: 201601
